FAERS Safety Report 7257043-2 (Version None)
Quarter: 2011Q1

REPORT INFORMATION
  Report Type: 
  Country: None (occurrence: None)
  Receive Date: 20110129
  Receipt Date: 20100625
  Transmission Date: 20110831
  Serious: No
  Sender: FDA-Public Use
  Company Number: US-ABBOTT-10P-163-0653819-00

PATIENT
  Age: 57 Year
  Sex: Male

DRUGS (3)
  1. HUMIRA [Suspect]
     Indication: CROHN'S DISEASE
     Dates: start: 20100519
  2. HORMONE TREATMENT [Concomitant]
     Indication: PROSTATE CANCER
  3. INJECTION [Concomitant]
     Indication: PROSTATE CANCER
     Dosage: EVERY 3 MONTHS

REACTIONS (1)
  - OEDEMA PERIPHERAL [None]
